FAERS Safety Report 9981075 (Version 1)
Quarter: 2014Q1

REPORT INFORMATION
  Report Type: Spontaneous
  Country: GB (occurrence: None)
  Receive Date: 20140305
  Receipt Date: 20140305
  Transmission Date: 20141002
  Serious: Yes (Hospitalization, Other)
  Sender: FDA-Public Use
  Company Number: AUR-APL-2014-012178

PATIENT
  Age: 75 Year
  Sex: Male
  Weight: 101.6 kg

DRUGS (2)
  1. SIMVASTATIN [Suspect]
     Indication: BLOOD CHOLESTEROL INCREASED
     Route: 048
     Dates: start: 20100101, end: 20140101
  2. WARFARIN [Concomitant]

REACTIONS (7)
  - Myalgia [None]
  - Nasopharyngitis [None]
  - Dizziness [None]
  - Constipation [None]
  - Dyspepsia [None]
  - Headache [None]
  - Pain [None]
